FAERS Safety Report 21307306 (Version 2)
Quarter: 2022Q3

REPORT INFORMATION
  Report Type: Report from Study
  Country: CA (occurrence: CA)
  Receive Date: 20220908
  Receipt Date: 20220919
  Transmission Date: 20221027
  Serious: Yes (Other)
  Sender: FDA-Public Use
  Company Number: CA-TAKEDA-2022TUS061496

PATIENT
  Age: 24 Year
  Sex: Female

DRUGS (2)
  1. VEDOLIZUMAB [Suspect]
     Active Substance: VEDOLIZUMAB
     Indication: Colitis ulcerative
     Dosage: 300 MILLIGRAM
     Route: 042
     Dates: start: 20220503
  2. VEDOLIZUMAB [Suspect]
     Active Substance: VEDOLIZUMAB
     Indication: Colitis ulcerative
     Dosage: 108 MILLIGRAM
     Route: 058
     Dates: start: 20220827

REACTIONS (9)
  - Melaena [Unknown]
  - Migraine [Unknown]
  - Anaemia [Unknown]
  - Abnormal faeces [Unknown]
  - Blood sodium decreased [Unknown]
  - Injection site bruising [Unknown]
  - Asthenia [Unknown]
  - Urinary tract infection [Unknown]
  - Fatigue [Unknown]
